FAERS Safety Report 24710720 (Version 3)
Quarter: 2025Q2

REPORT INFORMATION
  Report Type: Spontaneous
  Country: AU (occurrence: AU)
  Receive Date: 20241209
  Receipt Date: 20250602
  Transmission Date: 20250716
  Serious: Yes (Life-Threatening, Hospitalization, Other)
  Sender: SANOFI AVENTIS
  Company Number: AU-DialogSolutions-SA-PI706942-C1

PATIENT
  Age: 63 Year
  Sex: Male

DRUGS (4)
  1. ASPIRIN [Suspect]
     Active Substance: ASPIRIN
     Indication: Acute myocardial infarction
  2. ASPIRIN [Suspect]
     Active Substance: ASPIRIN
     Indication: Antiplatelet therapy
  3. CLOPIDOGREL BISULFATE [Suspect]
     Active Substance: CLOPIDOGREL BISULFATE
     Indication: Acute myocardial infarction
     Dosage: 75 MG, QD
  4. CLOPIDOGREL BISULFATE [Suspect]
     Active Substance: CLOPIDOGREL BISULFATE
     Indication: Antiplatelet therapy
     Dosage: 75.000MG QD

REACTIONS (5)
  - Haemorrhage [Recovering/Resolving]
  - Epistaxis [Recovering/Resolving]
  - Haemoptysis [Recovering/Resolving]
  - Haematemesis [Recovering/Resolving]
  - Pharyngeal ulceration [Recovering/Resolving]
